FAERS Safety Report 6627782-2 (Version None)
Quarter: 2010Q1

REPORT INFORMATION
  Report Type: 
  Country: None (occurrence: None)
  Receive Date: 20100308
  Receipt Date: 20100301
  Transmission Date: 20100710
  Serious: Yes (Other)
  Sender: FDA-Public Use
  Company Number: SPV1-2010-00379

PATIENT
  Sex: Female
  Weight: 59 kg

DRUGS (5)
  1. LIALDA [Suspect]
     Indication: COLITIS ULCERATIVE
     Dosage: 2.4 G, 1X/DAY;QD, ORAL
     Route: 048
     Dates: start: 20070101, end: 20100102
  2. PREDNISONE [Concomitant]
  3. REMICADE (INFLIXIMAB) SOLUTION FOR INJECTION [Concomitant]
  4. ENTOCORT (BUDESONIDE) CAPSULE [Concomitant]
  5. HUMIRA (ADALIMUMAB) SOLUTION FOR INJECTION [Concomitant]

REACTIONS (2)
  - MEDICATION RESIDUE [None]
  - OVARIAN MASS [None]
